FAERS Safety Report 19106285 (Version 1)
Quarter: 2021Q2

REPORT INFORMATION
  Report Type: Spontaneous
  Country: GB (occurrence: GB)
  Receive Date: 20210408
  Receipt Date: 20210408
  Transmission Date: 20210717
  Serious: Yes (Hospitalization)
  Sender: FDA-Public Use
  Company Number: GB-SUN PHARMACEUTICAL INDUSTRIES LTD-2021R1-289911

PATIENT
  Age: 76 Year
  Sex: Female

DRUGS (3)
  1. RIVASTIGMINE. [Suspect]
     Active Substance: RIVASTIGMINE
     Indication: PARKINSON^S DISEASE
     Dosage: 1.5 MILLIGRAM, BID
     Route: 065
  2. CARBIDOPA AND LEVODOPA [Suspect]
     Active Substance: CARBIDOPA\LEVODOPA
     Indication: PARKINSON^S DISEASE
     Dosage: 25/100 MG TDS
     Route: 065
  3. QUETIAPINE. [Suspect]
     Active Substance: QUETIAPINE
     Indication: PARKINSON^S DISEASE
     Dosage: 25 MILLIGRAM, QD
     Route: 065

REACTIONS (2)
  - Neuroleptic malignant syndrome [Unknown]
  - Unresponsive to stimuli [Unknown]
